FAERS Safety Report 5342665-6 (Version None)
Quarter: 2007Q2

REPORT INFORMATION
  Report Type: 
  Country: None (occurrence: None)
  Receive Date: 20070601
  Receipt Date: 20070524
  Transmission Date: 20071010
  Serious: Yes (Hospitalization)
  Sender: FDA-Public Use
  Company Number: FR-AMGEN-UK226541

PATIENT
  Age: 78 Year
  Sex: Female

DRUGS (1)
  1. ARANESP [Suspect]
     Indication: MYELODYSPLASTIC SYNDROME
     Dates: start: 20061101

REACTIONS (5)
  - INFLAMMATION [None]
  - LYMPHOPENIA [None]
  - MICROCYTIC ANAEMIA [None]
  - PYREXIA [None]
  - SKIN ULCER [None]
